FAERS Safety Report 10547500 (Version 1)
Quarter: 2014Q4

REPORT INFORMATION
  Report Type: Spontaneous
  Country: US (occurrence: US)
  Receive Date: 20141028
  Receipt Date: 20141028
  Transmission Date: 20150529
  Serious: No
  Sender: FDA-Public Use
  Company Number: US-BIOGENIDEC-2014BI109851

PATIENT
  Age: 39 Year
  Sex: Female

DRUGS (1)
  1. TECFIDERA [Suspect]
     Active Substance: DIMETHYL FUMARATE
     Indication: MULTIPLE SCLEROSIS

REACTIONS (5)
  - Haematochezia [Not Recovered/Not Resolved]
  - Vaginal discharge [Not Recovered/Not Resolved]
  - Faeces soft [Not Recovered/Not Resolved]
  - Vaginal haemorrhage [Unknown]
  - Haemorrhoids [Unknown]

NARRATIVE: CASE EVENT DATE: 201408
